FAERS Safety Report 15057224 (Version 1)
Quarter: 2018Q2

REPORT INFORMATION
  Report Type: Spontaneous
  Country: US (occurrence: US)
  Receive Date: 20180604
  Receipt Date: 20180604
  Transmission Date: 20180711
  Serious: Yes (Other)
  Sender: FDA-Public Use
  Company Number: None

PATIENT
  Age: 54 Year
  Sex: Female
  Weight: 90 kg

DRUGS (4)
  1. FLUTICASONE 50 MCG NASAL SPRAY 120 RX [Suspect]
     Active Substance: FLUTICASONE
     Indication: SINUSITIS
     Dosage: ?          OTHER STRENGTH:50 MCG EVERY 12 HO;?
     Route: 055
  2. FLUTICASONE 50 MCG NASAL SPRAY 120 RX [Suspect]
     Active Substance: FLUTICASONE
     Indication: RHINITIS
     Dosage: ?          OTHER STRENGTH:50 MCG EVERY 12 HO;?
     Route: 055
  3. FLUTICASONE 50 MCG NASAL SPRAY 120 RX [Suspect]
     Active Substance: FLUTICASONE
     Indication: SINUS OPERATION
     Dosage: ?          OTHER STRENGTH:50 MCG EVERY 12 HO;?
     Route: 055
  4. FLUTICASONE 50 MCG NASAL SPRAY 120 RX [Suspect]
     Active Substance: FLUTICASONE
     Indication: DISEASE RECURRENCE
     Dosage: ?          OTHER STRENGTH:50 MCG EVERY 12 HO;?
     Route: 055

REACTIONS (4)
  - Epistaxis [None]
  - Vision blurred [None]
  - Visual impairment [None]
  - Nasal inflammation [None]

NARRATIVE: CASE EVENT DATE: 20180322
